FAERS Safety Report 6594671-1 (Version None)
Quarter: 2010Q1

REPORT INFORMATION
  Report Type: 
  Country: None (occurrence: None)
  Receive Date: 20100222
  Receipt Date: 20100122
  Transmission Date: 20100710
  Serious: No
  Sender: FDA-Public Use
  Company Number: US-BAYER-200938911NA

PATIENT
  Age: 74 Year
  Sex: Female

DRUGS (1)
  1. ULTRAVIST 300 [Suspect]
     Indication: POSITRON EMISSION TOMOGRAM
     Dosage: TOTAL DAILY DOSE: 75 ML  UNIT DOSE: 500 ML
     Route: 042

REACTIONS (1)
  - URTICARIA [None]
